FAERS Safety Report 6580577-0 (Version None)
Quarter: 2010Q1

REPORT INFORMATION
  Report Type: 
  Country: None (occurrence: None)
  Receive Date: 20100212
  Receipt Date: 20100203
  Transmission Date: 20100710
  Serious: Yes (Hospitalization, Other)
  Sender: FDA-Public Use
  Company Number: BR-PFIZER INC-2010014758

PATIENT
  Sex: Female

DRUGS (4)
  1. NEURONTIN [Suspect]
     Indication: OSTEOMYELITIS
     Dosage: 600 MG DAILY
     Route: 048
     Dates: start: 20020101
  2. LYRICA [Suspect]
  3. MORPHINE HCL ELIXIR [Suspect]
     Indication: PAIN
     Dosage: UNK
  4. MORPHINE SULFATE [Suspect]
     Indication: PAIN
     Dosage: UNK

REACTIONS (13)
  - ALOPECIA [None]
  - COMA [None]
  - DEPRESSION [None]
  - DYSPNOEA [None]
  - INSOMNIA [None]
  - LIMB DISCOMFORT [None]
  - MEMORY IMPAIRMENT [None]
  - OSTEOMYELITIS [None]
  - PAIN [None]
  - RESPIRATORY DISORDER [None]
  - SOMNOLENCE [None]
  - SPINAL OPERATION [None]
  - SWELLING [None]
